FAERS Safety Report 8262795-9 (Version None)
Quarter: 2012Q2

REPORT INFORMATION
  Report Type: 
  Country: None (occurrence: None)
  Receive Date: 20120405
  Receipt Date: 20120327
  Transmission Date: 20120825
  Serious: Yes (Other)
  Sender: FDA-Public Use
  Company Number: CH-JNJFOC-20120402036

PATIENT
  Age: 24 Year
  Sex: Female

DRUGS (11)
  1. TRAMADOL HCL [Suspect]
     Indication: BACK PAIN
     Route: 048
     Dates: start: 20110817, end: 20110907
  2. LIDOCAINE [Suspect]
     Indication: BACK PAIN
     Route: 061
     Dates: start: 20110817, end: 20110817
  3. TRAMADOL HYDROCHLORIDE [Suspect]
     Indication: BACK PAIN
     Route: 048
     Dates: start: 20110817, end: 20110817
  4. TIZANIDINE HCL [Suspect]
     Indication: BACK PAIN
     Route: 065
     Dates: start: 20110817, end: 20120201
  5. IBUPROFEN TABLETS [Suspect]
     Indication: BACK PAIN
     Route: 065
     Dates: start: 20110907, end: 20120201
  6. TOLPERISONE  HYDROCHLORIDE [Concomitant]
     Indication: BACK PAIN
     Route: 065
     Dates: start: 20110817, end: 20110907
  7. BELARA [Suspect]
     Indication: CONTRACEPTION
     Route: 048
     Dates: start: 20100101, end: 20120201
  8. KETESSE [Suspect]
     Indication: PRODUCT USED FOR UNKNOWN INDICATION
     Route: 065
     Dates: start: 20110817, end: 20110817
  9. TRIMETHOPRIM [Suspect]
     Indication: BACK PAIN
     Route: 065
     Dates: start: 20110817, end: 20110817
  10. PREDNISOLONE [Suspect]
     Indication: BACK PAIN
     Route: 065
     Dates: start: 20110817, end: 20110827
  11. LEXOTANIL [Suspect]
     Indication: PRODUCT USED FOR UNKNOWN INDICATION
     Route: 065
     Dates: start: 20110816, end: 20111001

REACTIONS (2)
  - PREGNANCY ON ORAL CONTRACEPTIVE [None]
  - MATERNAL EXPOSURE DURING PREGNANCY [None]
